FAERS Safety Report 7096105-X (Version None)
Quarter: 2010Q4

REPORT INFORMATION
  Report Type: 
  Country: None (occurrence: None)
  Receive Date: 20101111
  Receipt Date: 20101101
  Transmission Date: 20110411
  Serious: Yes (Hospitalization, Other)
  Sender: FDA-Public Use
  Company Number: US-ROCHE-718907

PATIENT
  Sex: Male
  Weight: 63.5 kg

DRUGS (4)
  1. ACCUTANE [Suspect]
     Indication: ACNE
     Route: 048
     Dates: start: 19900516, end: 19901001
  2. ACCUTANE [Suspect]
     Dosage: STOP DATE: 1992
     Route: 048
     Dates: start: 19920701
  3. ACCUTANE [Suspect]
     Route: 048
     Dates: start: 19960123
  4. ACCUTANE [Suspect]
     Route: 048
     Dates: start: 20020301

REACTIONS (6)
  - COLITIS [None]
  - CROHN'S DISEASE [None]
  - GASTROINTESTINAL INJURY [None]
  - INFLAMMATORY BOWEL DISEASE [None]
  - INTESTINAL HAEMORRHAGE [None]
  - LIP DRY [None]
